FAERS Safety Report 6241454-8 (Version None)
Quarter: 2009Q2

REPORT INFORMATION
  Report Type: 
  Country: None (occurrence: None)
  Receive Date: 20090623
  Receipt Date: 20030604
  Transmission Date: 20091009
  Serious: Yes (Hospitalization)
  Sender: FDA-Public Use
  Company Number: DE-ROCHE-338909

PATIENT
  Sex: Male
  Weight: 65 kg

DRUGS (61)
  1. DACLIZUMAB [Suspect]
     Route: 042
     Dates: start: 20030204, end: 20030204
  2. DACLIZUMAB [Suspect]
     Dosage: WEEK-2, 4 AND 6 VISIT
     Route: 042
     Dates: start: 20030218
  3. DACLIZUMAB [Suspect]
     Route: 042
     Dates: start: 20030401, end: 20030401
  4. MYCOPHENOLATE MOFETIL [Suspect]
     Dosage: DRUG: CELLCEPT
     Route: 048
     Dates: start: 20030204
  5. MYCOPHENOLATE MOFETIL [Suspect]
     Route: 048
     Dates: start: 20030322
  6. MYCOPHENOLATE MOFETIL [Suspect]
     Route: 048
     Dates: start: 20031001
  7. MYCOPHENOLATE MOFETIL [Suspect]
     Route: 048
     Dates: start: 20031103
  8. MYCOPHENOLATE MOFETIL [Suspect]
     Route: 048
     Dates: start: 20050217
  9. MYFORTIC [Suspect]
     Route: 048
     Dates: start: 20050113
  10. CYCLOSPORINE [Suspect]
     Dosage: DRUG: SANDIMMUN OPTORAL
     Route: 048
     Dates: start: 20030204
  11. CYCLOSPORINE [Suspect]
     Route: 048
     Dates: start: 20030801
  12. CYCLOSPORINE [Suspect]
     Route: 048
     Dates: start: 20031001
  13. CYCLOSPORINE [Suspect]
     Route: 048
     Dates: start: 20040301
  14. CYCLOSPORINE [Suspect]
     Route: 048
     Dates: start: 20040601
  15. CYCLOSPORINE [Suspect]
     Dosage: DRUG: SANDIMMUN OPTORAL
     Route: 048
     Dates: start: 20050405
  16. URBASON [Suspect]
     Route: 048
     Dates: start: 20030206
  17. URBASON [Suspect]
     Route: 048
     Dates: start: 20030211
  18. URBASON [Suspect]
     Route: 048
     Dates: start: 20040213
  19. URBASON [Suspect]
     Route: 048
     Dates: start: 20030219
  20. URBASON [Suspect]
     Route: 048
     Dates: start: 20030322
  21. URBASON [Suspect]
     Route: 048
     Dates: start: 20030404
  22. URBASON [Suspect]
     Route: 048
     Dates: start: 20030527
  23. URBASON [Suspect]
     Route: 048
     Dates: start: 20030904
  24. URBASON [Suspect]
     Route: 042
     Dates: start: 20030204, end: 20030204
  25. URBASON [Suspect]
     Route: 042
     Dates: start: 20030205, end: 20030205
  26. URBASON [Suspect]
     Route: 042
     Dates: start: 20030208
  27. COTRIM [Concomitant]
     Route: 048
     Dates: start: 20030204
  28. COTRIM [Concomitant]
     Route: 048
     Dates: start: 20040630
  29. VALCYTE [Concomitant]
     Route: 048
     Dates: start: 20030401
  30. PANTOZOL [Concomitant]
     Route: 048
     Dates: start: 20030204
  31. LASIX [Concomitant]
     Route: 048
     Dates: start: 20030209
  32. NORVASC [Concomitant]
     Route: 048
     Dates: start: 20030401
  33. NORVASC [Concomitant]
     Route: 048
     Dates: start: 20040121
  34. BELOC-ZOK MITE [Concomitant]
     Route: 048
     Dates: start: 20030401
  35. ANTRA [Concomitant]
     Route: 048
     Dates: start: 20030204
  36. ANTRA [Concomitant]
     Route: 048
     Dates: start: 20040421
  37. CYMEVEN [Concomitant]
     Route: 048
     Dates: start: 20030204
  38. ELOBACT [Concomitant]
     Route: 048
     Dates: start: 20030212
  39. PIPRIL [Concomitant]
     Route: 042
     Dates: start: 20030204
  40. STAPHYLEX [Concomitant]
     Route: 042
     Dates: start: 20030204
  41. AUGMENTIN '125' [Concomitant]
     Route: 048
     Dates: start: 20041020
  42. AUGMENTIN '125' [Concomitant]
     Route: 048
     Dates: start: 20041215
  43. AUGMENTIN '125' [Concomitant]
     Route: 048
     Dates: start: 20050808
  44. CEFUROXIME [Concomitant]
     Route: 048
     Dates: start: 20040114
  45. CEFUROXIME [Concomitant]
     Route: 048
     Dates: start: 20040519
  46. CIBACEN [Concomitant]
     Route: 048
     Dates: start: 20040121
  47. CIPROBAY [Concomitant]
     Route: 048
     Dates: start: 20040316, end: 20040325
  48. CIPROBAY [Concomitant]
     Route: 048
     Dates: start: 20040426
  49. LASIX [Concomitant]
     Route: 042
     Dates: start: 20030206
  50. STAPHYLEX [Concomitant]
     Route: 048
     Dates: start: 20040714
  51. TAZOBAC [Concomitant]
     Route: 042
     Dates: start: 20040218
  52. TAZOBAC [Concomitant]
     Route: 042
     Dates: start: 20040806
  53. TAZOBAC [Concomitant]
     Route: 042
     Dates: start: 20040806, end: 20040806
  54. AMPICILLIN AND SULBACTAM [Concomitant]
     Route: 048
     Dates: start: 20040421
  55. AMPICILLIN AND SULBACTAM [Concomitant]
     Route: 048
     Dates: start: 20040809
  56. VANCOMYCIN [Concomitant]
     Route: 042
     Dates: start: 20040218
  57. VANCOMYCIN [Concomitant]
     Route: 042
     Dates: start: 20040826
  58. VANCOMYCIN [Concomitant]
     Route: 042
     Dates: start: 20040905
  59. VANCOMYCIN [Concomitant]
     Route: 042
     Dates: start: 20050301
  60. PRIMAXIN [Concomitant]
     Route: 042
     Dates: start: 20040826
  61. PRIMAXIN [Concomitant]
     Route: 042
     Dates: start: 20050609

REACTIONS (3)
  - COMPLICATIONS OF TRANSPLANTED KIDNEY [None]
  - HYDRONEPHROSIS [None]
  - URINARY TRACT INFECTION [None]
